FAERS Safety Report 9433665 (Version 3)
Quarter: 2014Q1

REPORT INFORMATION
  Report Type: Spontaneous
  Country: JP (occurrence: JP)
  Receive Date: 20130731
  Receipt Date: 20140120
  Transmission Date: 20141002
  Serious: Yes (Hospitalization)
  Sender: FDA-Public Use
  Company Number: JP-BAXTER-2013BAX029345

PATIENT
  Sex: Female

DRUGS (6)
  1. DIANEAL-N PD-4 1.5 PD SOLUTION [Suspect]
     Indication: RENAL FAILURE CHRONIC
     Route: 033
  2. DIANEAL-N PD-4 1.5 PD SOLUTION [Suspect]
     Indication: PERITONEAL DIALYSIS
  3. DIANEAL-N PD-4 2.5 PD SOLUTION [Suspect]
     Indication: RENAL FAILURE CHRONIC
     Route: 033
  4. DIANEAL-N PD-4 2.5 PD SOLUTION [Suspect]
     Indication: PERITONEAL DIALYSIS
  5. EXTRANEAL PD SOLUTION [Suspect]
     Indication: RENAL FAILURE CHRONIC
     Route: 033
  6. EXTRANEAL PD SOLUTION [Suspect]
     Indication: PERITONEAL DIALYSIS

REACTIONS (2)
  - Blood disorder [Recovered/Resolved]
  - Condition aggravated [Recovered/Resolved]
